FAERS Safety Report 9671645 (Version 1)
Quarter: 2013Q4

REPORT INFORMATION
  Report Type: Spontaneous
  Country: US (occurrence: US)
  Receive Date: 20131106
  Receipt Date: 20131106
  Transmission Date: 20140711
  Serious: Yes (Other)
  Sender: FDA-Public Use
  Company Number: US-PFIZER INC-2013316336

PATIENT
  Sex: Male

DRUGS (4)
  1. NEURONTIN [Suspect]
     Dosage: UNK
  2. LOPID [Suspect]
     Dosage: UNK
  3. GLUCOTROL [Suspect]
     Dosage: UNK
  4. SEROQUEL [Suspect]
     Dosage: UNK

REACTIONS (2)
  - Bipolar disorder [Unknown]
  - Mental disorder [Unknown]
